FAERS Safety Report 24396508 (Version 4)
Quarter: 2025Q1

REPORT INFORMATION
  Report Type: Report from Study
  Country: CA (occurrence: CA)
  Receive Date: 20241004
  Receipt Date: 20250301
  Transmission Date: 20250408
  Serious: Yes (Other)
  Sender: CSL BEHRING
  Company Number: CA-BEH-2024179607

PATIENT
  Age: 62 Year
  Sex: Female
  Weight: 68 kg

DRUGS (21)
  1. BERINERT [Suspect]
     Active Substance: HUMAN C1-ESTERASE INHIBITOR
     Indication: Angioedema
     Dosage: 4000 IU, TIW
     Route: 058
     Dates: start: 20240209, end: 20240923
  2. BERINERT [Suspect]
     Active Substance: HUMAN C1-ESTERASE INHIBITOR
     Indication: Angioedema
     Dosage: 4000 IU, TIW
     Route: 058
     Dates: start: 20240209, end: 20240923
  3. BERINERT [Suspect]
     Active Substance: HUMAN C1-ESTERASE INHIBITOR
     Indication: Prophylaxis
     Dosage: 2000 IU, TIW
     Route: 058
     Dates: start: 20240209
  4. BERINERT [Suspect]
     Active Substance: HUMAN C1-ESTERASE INHIBITOR
     Indication: Prophylaxis
     Dosage: 2000 IU, TIW
     Route: 058
     Dates: start: 20240209
  5. BERINERT [Suspect]
     Active Substance: HUMAN C1-ESTERASE INHIBITOR
     Indication: Angioedema
     Route: 058
     Dates: start: 20240209, end: 20240923
  6. BERINERT [Suspect]
     Active Substance: HUMAN C1-ESTERASE INHIBITOR
     Indication: Angioedema
     Route: 058
     Dates: start: 20240209, end: 20240923
  7. BERINERT [Suspect]
     Active Substance: HUMAN C1-ESTERASE INHIBITOR
     Indication: Prophylaxis
     Dosage: 2000 IU, TIW
     Route: 058
     Dates: start: 20240209
  8. BERINERT [Suspect]
     Active Substance: HUMAN C1-ESTERASE INHIBITOR
     Indication: Prophylaxis
     Dosage: 2000 IU, TIW
     Route: 058
     Dates: start: 20240209
  9. BERINERT [Suspect]
     Active Substance: HUMAN C1-ESTERASE INHIBITOR
     Indication: Product used for unknown indication
     Dosage: 2000 IU, TIW
     Route: 058
     Dates: start: 20240209
  10. BERINERT [Suspect]
     Active Substance: HUMAN C1-ESTERASE INHIBITOR
     Indication: Product used for unknown indication
     Dosage: 2000 IU, TIW
     Route: 058
     Dates: start: 20240209
  11. CROMOLYN SODIUM [Concomitant]
     Active Substance: CROMOLYN SODIUM
  12. SINGULAIR [Concomitant]
     Active Substance: MONTELUKAST SODIUM
  13. Reactine [Concomitant]
  14. RANITIDINE HYDROCHLORIDE [Concomitant]
     Active Substance: RANITIDINE HYDROCHLORIDE
  15. DOMPERIDONE [Concomitant]
     Active Substance: DOMPERIDONE
  16. RABEPRAZOLE [Concomitant]
     Active Substance: RABEPRAZOLE
  17. RISEDRONATE SODIUM [Concomitant]
     Active Substance: RISEDRONATE SODIUM
  18. FIRAZYR [Concomitant]
     Active Substance: ICATIBANT ACETATE
  19. SYMBICORT [Concomitant]
     Active Substance: BUDESONIDE\FORMOTEROL FUMARATE DIHYDRATE
  20. VENTOLIN [Concomitant]
     Active Substance: ALBUTEROL SULFATE
  21. BOTOX [Concomitant]
     Active Substance: ONABOTULINUMTOXINA
     Indication: Bruxism
     Dosage: UNK UNK, Q3MT

REACTIONS (7)
  - Cerebrovascular accident [Unknown]
  - Hereditary angioedema [Unknown]
  - Hypertension [Unknown]
  - Headache [Unknown]
  - Contusion [Unknown]
  - Therapy interrupted [Unknown]
  - Off label use [Unknown]

NARRATIVE: CASE EVENT DATE: 20240822
